FAERS Safety Report 7827777-7 (Version None)
Quarter: 2011Q4

REPORT INFORMATION
  Report Type: 
  Country: None (occurrence: None)
  Receive Date: 20111019
  Receipt Date: 20111019
  Transmission Date: 20120403
  Serious: Yes (Hospitalization)
  Sender: FDA-Public Use
  Company Number: None

PATIENT
  Age: 78 Year
  Sex: Female

DRUGS (2)
  1. GEMFIBROZIL [Suspect]
     Dates: start: 20110101
  2. LOVASTATIN [Suspect]
     Indication: RHABDOMYOLYSIS
     Dates: start: 20040101

REACTIONS (4)
  - TROPONIN INCREASED [None]
  - BLOOD CREATINE PHOSPHOKINASE INCREASED [None]
  - MUSCULAR WEAKNESS [None]
  - FALL [None]
